FAERS Safety Report 9643891 (Version 2)
Quarter: 2014Q1

REPORT INFORMATION
  Report Type: Spontaneous
  Country: US (occurrence: US)
  Receive Date: 20131024
  Receipt Date: 20140103
  Transmission Date: 20141002
  Serious: No
  Sender: FDA-Public Use
  Company Number: US-PFIZER INC-2013300731

PATIENT
  Age: 26 Year
  Sex: Male

DRUGS (1)
  1. BENEFIX [Suspect]
     Indication: FACTOR IX DEFICIENCY
     Dosage: 39000 IU, UNK
     Dates: start: 20070829

REACTIONS (2)
  - Hand fracture [Recovering/Resolving]
  - Accident at work [Recovering/Resolving]
